FAERS Safety Report 20083192 (Version 1)
Quarter: 2021Q4

REPORT INFORMATION
  Report Type: Spontaneous
  Country: DE (occurrence: DE)
  Receive Date: 20211117
  Receipt Date: 20211117
  Transmission Date: 20220303
  Serious: Yes (Hospitalization, Other)
  Sender: FDA-Public Use
  Company Number: DE-ADRED-07073-01

PATIENT
  Age: 89 Year
  Sex: Male
  Weight: 60 kg

DRUGS (7)
  1. PREDNISOLONE [Suspect]
     Active Substance: PREDNISOLONE
     Indication: Product used for unknown indication
     Dosage: 50 MILLIGRAM, (1-0-0-0)
  2. AZATHIOPRINE [Suspect]
     Active Substance: AZATHIOPRINE
     Indication: Product used for unknown indication
     Dosage: 50 MILLIGRAM, (1-0-1-0)
  3. ESOMEPRAZOLE [Concomitant]
     Active Substance: ESOMEPRAZOLE
     Dosage: 40 MILLIGRAM, (0-0-1-0)
  4. PYRIDOSTIGMINE [Concomitant]
     Active Substance: PYRIDOSTIGMINE
     Dosage: 60 MILLIGRAM, (SCHEMA)
  5. PYRIDOSTIGMINE [Concomitant]
     Active Substance: PYRIDOSTIGMINE
     Dosage: 180 MILLIGRAM, (0-0-0-1)
  6. CALCIUM [Concomitant]
     Active Substance: CALCIUM
     Dosage: UNK, (1-0-0-0)
  7. MIRTAZAPINE [Concomitant]
     Active Substance: MIRTAZAPINE
     Dosage: 15 MILLIGRAM, (0-0-0-1)

REACTIONS (12)
  - Hypothermia [Unknown]
  - Myasthenia gravis crisis [Unknown]
  - Respiratory failure [Unknown]
  - Anaemia [Unknown]
  - General physical health deterioration [Unknown]
  - Tachypnoea [Unknown]
  - Depressed level of consciousness [Unknown]
  - Electrocardiogram abnormal [Unknown]
  - Dehydration [Unknown]
  - Bradycardia [Unknown]
  - Systemic infection [Unknown]
  - Fall [Unknown]
